FAERS Safety Report 6271113-7 (Version None)
Quarter: 2009Q3

REPORT INFORMATION
  Report Type: 
  Country: None (occurrence: None)
  Receive Date: 20090716
  Receipt Date: 20090604
  Transmission Date: 20100115
  Serious: No
  Sender: FDA-Public Use
  Company Number: US-TYCO HEALTHCARE/MALLINCKRODT-T200901143

PATIENT
  Sex: Female
  Weight: 59.864 kg

DRUGS (9)
  1. OXYCODONE HCL AND ACETAMINOPHEN [Suspect]
     Indication: BACK PAIN
     Dosage: ONE TAB, EVERY 6 HRS
     Route: 048
     Dates: start: 20090408, end: 20090501
  2. LIDOCAINE [Concomitant]
     Indication: BACK PAIN
     Dosage: UNK
     Route: 062
  3. FENTANYL-100 [Concomitant]
     Indication: BACK PAIN
     Dosage: EVERY 3 DAYS
     Route: 062
  4. DURAGESIC-100 [Concomitant]
     Indication: BACK PAIN
     Dosage: 75 MG, UNK
     Route: 062
  5. NEURONTIN [Concomitant]
     Indication: MUSCLE SPASMS
     Dosage: 100 MG (2 CAPS), TID
     Route: 048
  6. LASIX [Concomitant]
     Indication: FLUID RETENTION
     Dosage: 40 MG, QD
     Route: 048
  7. ZETIA [Concomitant]
     Indication: BLOOD CHOLESTEROL INCREASED
     Dosage: 10 MG (1/2 TAB), QD AT HS
     Route: 048
  8. CYMBALTA [Concomitant]
     Indication: DEPRESSION
     Dosage: 60 MG, QD AT HS
     Route: 048
  9. CENTRUM SILVER                     /01292501/ [Concomitant]
     Indication: SUPPLEMENTATION THERAPY
     Dosage: 1 QD
     Route: 048

REACTIONS (4)
  - DEPRESSION [None]
  - FEELING ABNORMAL [None]
  - INSOMNIA [None]
  - WRONG DRUG ADMINISTERED [None]
